FAERS Safety Report 12766071 (Version 1)
Quarter: 2016Q3

REPORT INFORMATION
  Report Type: Spontaneous
  Country: US (occurrence: US)
  Receive Date: 20160921
  Receipt Date: 20160921
  Transmission Date: 20161109
  Serious: No
  Sender: FDA-Public Use
  Company Number: US-BAUSCH-BL-2015-023720

PATIENT
  Sex: Male
  Weight: 90.8 kg

DRUGS (2)
  1. EFUDEX [Suspect]
     Active Substance: FLUOROURACIL
     Indication: ACTINIC KERATOSIS
     Dosage: DAILY
     Route: 061
     Dates: start: 1978
  2. ATORVASTATIN [Concomitant]
     Active Substance: ATORVASTATIN
     Indication: BLOOD CHOLESTEROL INCREASED
     Route: 048

REACTIONS (3)
  - Application site rash [Recovered/Resolved]
  - Urticaria [Recovered/Resolved]
  - Application site swelling [Recovered/Resolved]
